FAERS Safety Report 9821047 (Version 3)
Quarter: 2014Q2

REPORT INFORMATION
  Report Type: Report from Study
  Country: FR (occurrence: FR)
  Receive Date: 20140116
  Receipt Date: 20140422
  Transmission Date: 20141212
  Serious: Yes (Other)
  Sender: FDA-Public Use
  Company Number: FR-SA-2014SA002939

PATIENT
  Age: 52 Year
  Sex: Male

DRUGS (6)
  1. CAMPATH [Suspect]
     Indication: CHRONIC LYMPHOCYTIC LEUKAEMIA RECURRENT
     Route: 058
     Dates: start: 201311, end: 20131127
  2. CAMPATH [Suspect]
     Indication: CHRONIC LYMPHOCYTIC LEUKAEMIA RECURRENT
     Route: 058
     Dates: start: 201311, end: 20131127
  3. CAMPATH [Suspect]
     Indication: CHRONIC LYMPHOCYTIC LEUKAEMIA RECURRENT
     Route: 058
     Dates: start: 20131216
  4. CAMPATH [Suspect]
     Indication: CHRONIC LYMPHOCYTIC LEUKAEMIA RECURRENT
     Route: 058
     Dates: start: 20131216
  5. BACTRIM FORTE [Concomitant]
     Indication: ANTIBIOTIC PROPHYLAXIS
     Dates: start: 20131104
  6. ZELITREX [Concomitant]
     Indication: ANTIBIOTIC PROPHYLAXIS
     Dates: start: 20131104, end: 20131127

REACTIONS (1)
  - Cytomegalovirus colitis [Recovered/Resolved]
